FAERS Safety Report 4273142-1 (Version None)
Quarter: 2004Q1

REPORT INFORMATION
  Report Type: 
  Country: None (occurrence: None)
  Receive Date: 20040116
  Receipt Date: 20040109
  Transmission Date: 20041129
  Serious: Yes (Life-Threatening)
  Sender: FDA-Public Use
  Company Number: JP-GLAXOSMITHKLINE-B0319299A

PATIENT
  Sex: Female

DRUGS (4)
  1. CEFAZOLIN [Suspect]
     Dosage: 1G TWICE PER DAY
     Route: 042
     Dates: start: 20031219, end: 20031220
  2. ROPION [Suspect]
     Dates: start: 20031221, end: 20031224
  3. LOXOPROFEN SODIUM [Concomitant]
  4. REBAMIPIDE [Concomitant]

REACTIONS (4)
  - HEPATIC FUNCTION ABNORMAL [None]
  - RENAL FAILURE [None]
  - RESPIRATORY FAILURE [None]
  - STEVENS-JOHNSON SYNDROME [None]
